FAERS Safety Report 8976769 (Version 2)
Quarter: 2012Q4

REPORT INFORMATION
  Report Type: 
  Country: US (occurrence: US)
  Receive Date: 20121220
  Receipt Date: 20121227
  Transmission Date: 20130627
  Serious: Yes (Life-Threatening, Other)
  Sender: FDA-Public Use
  Company Number: US-BAYER-2012-132462

PATIENT
  Age: 39 Year
  Sex: Male
  Weight: 89.8 kg

DRUGS (1)
  1. ALEVE CAPLET/TABLET,MIDOL EXTENDED RELIEF CAPLET [Suspect]
     Indication: GENERAL BODY PAIN
     Dosage: 2 DF, ONCE
     Route: 048
     Dates: start: 20121214, end: 20121214

REACTIONS (13)
  - Anaphylactoid reaction [Recovered/Resolved]
  - Pharyngeal oedema [Recovered/Resolved]
  - Loss of consciousness [Recovered/Resolved]
  - Erythema [Recovered/Resolved]
  - Urticaria [Recovered/Resolved]
  - Ocular hyperaemia [Recovered/Resolved]
  - Swollen tongue [Recovered/Resolved]
  - Pharyngeal oedema [Recovered/Resolved]
  - Loss of consciousness [Recovered/Resolved]
  - Erythema [Recovered/Resolved]
  - Urticaria [Recovered/Resolved]
  - Ocular hyperaemia [Recovered/Resolved]
  - Swollen tongue [Recovered/Resolved]
